FAERS Safety Report 9112768 (Version 1)
Quarter: 2013Q1

REPORT INFORMATION
  Report Type: Report from Study
  Country: FR (occurrence: FR)
  Receive Date: 20130211
  Receipt Date: 20130211
  Transmission Date: 20140127
  Serious: Yes (Hospitalization)
  Sender: FDA-Public Use
  Company Number: FR-ROCHE-1189449

PATIENT
  Age: 29 None
  Sex: Female

DRUGS (9)
  1. ROACTEMRA [Suspect]
     Indication: RHEUMATOID ARTHRITIS
     Route: 041
     Dates: start: 20100614
  2. ROACTEMRA [Suspect]
     Route: 041
     Dates: start: 20100713
  3. ROACTEMRA [Suspect]
     Route: 041
     Dates: end: 20100914
  4. ROACTEMRA [Suspect]
     Route: 041
     Dates: start: 20120312
  5. ROACTEMRA [Suspect]
     Route: 041
     Dates: start: 20120604
  6. ROACTEMRA [Suspect]
     Route: 041
     Dates: start: 20120507
  7. METHOTREXATE [Concomitant]
     Route: 065
  8. SPECIAFOLDINE [Concomitant]
     Dosage: 2 DF WEEKLY
     Route: 065
  9. INEXIUM [Concomitant]
     Dosage: 1 DF DAILY
     Route: 065

REACTIONS (4)
  - Cellulitis [Recovered/Resolved]
  - Arthrodesis [Recovered/Resolved]
  - Post procedural sepsis [Recovered/Resolved]
  - Bronchitis [Recovered/Resolved]
